FAERS Safety Report 19163001 (Version 2)
Quarter: 2021Q4

REPORT INFORMATION
  Report Type: Spontaneous
  Country: US (occurrence: US)
  Receive Date: 20210421
  Receipt Date: 20211103
  Transmission Date: 20220303
  Serious: Yes (Hospitalization)
  Sender: FDA-Public Use
  Company Number: US-NOVOPROD-804375

PATIENT
  Age: 70 Year
  Sex: Male

DRUGS (18)
  1. OZEMPIC [Suspect]
     Active Substance: SEMAGLUTIDE
     Indication: Product used for unknown indication
     Dosage: 1 MG
     Route: 058
     Dates: end: 20210317
  2. INVOKANA [Concomitant]
     Active Substance: CANAGLIFLOZIN
     Indication: Product used for unknown indication
     Dosage: 300 MG, QD BEFORE THE FIRST MEAL OF THE DAY
     Route: 048
  3. CRESTOR [Concomitant]
     Active Substance: ROSUVASTATIN CALCIUM
     Indication: Product used for unknown indication
     Dosage: 40 MG, QD
     Route: 048
  4. ZETIA [Concomitant]
     Active Substance: EZETIMIBE
     Indication: Product used for unknown indication
     Dosage: 10 MG, QD
     Route: 048
  5. VASCEPA [Concomitant]
     Active Substance: ICOSAPENT ETHYL
     Indication: Product used for unknown indication
     Dosage: 2 G, BID WITH MEALS
     Route: 048
  6. SOMATULINE DEPOT [Concomitant]
     Active Substance: LANREOTIDE ACETATE
     Indication: Product used for unknown indication
     Dosage: 0.5 ML Q28DAYS
     Route: 058
  7. NITROGLYCERIN [Concomitant]
     Active Substance: NITROGLYCERIN
     Indication: Product used for unknown indication
     Dosage: 0.4 MG AS DIRECTED
     Route: 060
  8. XARELTO [Concomitant]
     Active Substance: RIVAROXABAN
     Indication: Product used for unknown indication
     Dosage: 2.5 MG, BID
     Route: 048
  9. ERGOCALCIFEROL [Concomitant]
     Active Substance: ERGOCALCIFEROL
     Indication: Product used for unknown indication
     Dosage: 5000 IU, QD
     Route: 048
  10. CYANOCOBALAMIN [Concomitant]
     Active Substance: CYANOCOBALAMIN
     Indication: Product used for unknown indication
     Dosage: 100 ?G, BIW
     Route: 048
  11. ALLEGRA ALLERGY [Concomitant]
     Active Substance: FEXOFENADINE HYDROCHLORIDE
     Indication: Product used for unknown indication
     Dosage: 60 MG, PRN
     Route: 048
  12. ASPIRIN [Concomitant]
     Active Substance: ASPIRIN
     Indication: Product used for unknown indication
     Dosage: 81 MG, QD
     Route: 048
  13. METOPROLOL TARTRATE [Concomitant]
     Active Substance: METOPROLOL TARTRATE
     Indication: Product used for unknown indication
     Dosage: 25 MG, QD
     Route: 048
  14. RANOLAZINE [Concomitant]
     Active Substance: RANOLAZINE
     Indication: Product used for unknown indication
     Dosage: 500 MG, BID
     Route: 048
  15. AMBIEN [Concomitant]
     Active Substance: ZOLPIDEM TARTRATE
     Indication: Product used for unknown indication
     Dosage: 10 MG, QD AT BEDTIME AS NEEDED
     Route: 048
  16. DIAZEPAM [Concomitant]
     Active Substance: DIAZEPAM
     Indication: Product used for unknown indication
     Dosage: 10 MG, QD PRN
     Route: 048
  17. LYRICA [Concomitant]
     Active Substance: PREGABALIN
     Indication: Product used for unknown indication
     Dosage: 100 MG, BID PRN
     Route: 048
  18. POTASSIUM CITRATE [Concomitant]
     Active Substance: POTASSIUM CITRATE
     Indication: Product used for unknown indication
     Dosage: 15 MEQ 2-3 TIMES
     Route: 065

REACTIONS (5)
  - Neuroendocrine tumour [Recovered/Resolved]
  - Lymphoma [Unknown]
  - Polydipsia [Unknown]
  - Weight decreased [Unknown]
  - Hypoglycaemia [Unknown]

NARRATIVE: CASE EVENT DATE: 20210101
